FAERS Safety Report 4453629-9 (Version None)
Quarter: 2004Q3

REPORT INFORMATION
  Report Type: 
  Country: None (occurrence: None)
  Receive Date: 20040902
  Receipt Date: 20040514
  Transmission Date: 20050211
  Serious: Yes (Disabling, Other)
  Sender: FDA-Public Use
  Company Number: 200417560BWH

PATIENT
  Age: 43 Year
  Sex: Male
  Weight: 117.9352 kg

DRUGS (1)
  1. LEVITRA [Suspect]
     Dosage: 20 MG, ONCE, ORAL
     Route: 048
     Dates: start: 20040320

REACTIONS (1)
  - HEADACHE [None]
